FAERS Safety Report 8336249-5 (Version None)
Quarter: 2012Q2

REPORT INFORMATION
  Report Type: 
  Country: None (occurrence: None)
  Receive Date: 20120501
  Receipt Date: 20120419
  Transmission Date: 20120825
  Serious: Yes (Death, Hospitalization)
  Sender: FDA-Public Use
  Company Number: B0797696A

PATIENT
  Age: 50 Year
  Sex: Male
  Weight: 63.8665 kg

DRUGS (7)
  1. ZIDOVUDINE [Suspect]
     Indication: HIV INFECTION
     Dosage: 300 MG/ TWICE PER DAY
     Dates: start: 20010101
  2. LAMIVUDINE [Suspect]
     Indication: HIV INFECTION
     Dates: start: 20010101
  3. NELFINAVIR MESYLATE [Suspect]
     Indication: HIV INFECTION
     Dates: start: 20010101
  4. DIDANOSINE [Suspect]
     Indication: HIV INFECTION
     Dosage: 400 MG/ PER DAY
  5. EFAVIRENZ [Suspect]
     Indication: HIV INFECTION
  6. LOPINAVIR (FORMULATION UNKNOWN) (LOPINAVIR) [Suspect]
     Indication: HIV INFECTION
     Dates: start: 20070101
  7. NEVIRAPINE [Suspect]
     Indication: HIV INFECTION
     Dates: start: 20050101, end: 20070101

REACTIONS (29)
  - WEIGHT DECREASED [None]
  - CHOLESTASIS [None]
  - TOXICITY TO VARIOUS AGENTS [None]
  - GASTROINTESTINAL NEOPLASM [None]
  - DIARRHOEA [None]
  - ASCITES [None]
  - LIPOATROPHY [None]
  - INSULIN RESISTANCE [None]
  - GASTRITIS ATROPHIC [None]
  - LIVER DISORDER [None]
  - VARICES OESOPHAGEAL [None]
  - PORTAL HYPERTENSION [None]
  - GENERAL PHYSICAL HEALTH DETERIORATION [None]
  - ILEITIS [None]
  - CACHEXIA [None]
  - HYPOALBUMINAEMIA [None]
  - LUMBAR VERTEBRAL FRACTURE [None]
  - BLOOD IRON DECREASED [None]
  - SERUM FERRITIN DECREASED [None]
  - ILEAL ULCER [None]
  - ACQUIRED GENE MUTATION [None]
  - NODULAR REGENERATIVE HYPERPLASIA [None]
  - PATHOLOGICAL FRACTURE [None]
  - GYNAECOMASTIA [None]
  - PORTAL VEIN THROMBOSIS [None]
  - COLLATERAL CIRCULATION [None]
  - OSTEOPOROSIS [None]
  - HYPOMETABOLISM [None]
  - INTESTINAL VILLI ATROPHY [None]
